FAERS Safety Report 23255884 (Version 1)
Quarter: 2023Q4

REPORT INFORMATION
  Report Type: Spontaneous
  Country: US (occurrence: None)
  Receive Date: 20231204
  Receipt Date: 20231204
  Transmission Date: 20240110
  Serious: No
  Sender: FDA-Public Use
  Company Number: US-RedHill Biopharma Inc.-RDH202310-000115

PATIENT
  Sex: Female

DRUGS (1)
  1. TALICIA [Suspect]
     Active Substance: AMOXICILLIN\OMEPRAZOLE MAGNESIUM\RIFABUTIN
     Indication: Helicobacter infection
     Dosage: UNK
     Route: 048
     Dates: start: 20230920

REACTIONS (11)
  - Bone pain [Unknown]
  - Feeling abnormal [Unknown]
  - Limb discomfort [Recovered/Resolved]
  - Taste disorder [Unknown]
  - Discomfort [Unknown]
  - Sleep disorder [Unknown]
  - Chromaturia [Unknown]
  - Decreased appetite [Unknown]
  - Vomiting [Unknown]
  - Headache [Recovered/Resolved]
  - Product dose omission issue [Unknown]

NARRATIVE: CASE EVENT DATE: 20230901
